FAERS Safety Report 7360942-4 (Version None)
Quarter: 2011Q1

REPORT INFORMATION
  Report Type: 
  Country: None (occurrence: None)
  Receive Date: 20110318
  Receipt Date: 20110316
  Transmission Date: 20110831
  Serious: Yes (Other)
  Sender: FDA-Public Use
  Company Number: JP-ELI_LILLY_AND_COMPANY-JP201103004709

PATIENT
  Age: 71 Year
  Sex: Male

DRUGS (3)
  1. GEMZAR [Suspect]
     Indication: PANCREATIC CARCINOMA NON-RESECTABLE
     Route: 042
  2. GEMZAR [Suspect]
     Dosage: 1000 MG, OTHER
     Route: 042
  3. TS 1 [Concomitant]
     Indication: PANCREATIC CARCINOMA NON-RESECTABLE
     Dosage: 80MG, OTHER
     Route: 048

REACTIONS (5)
  - ANAEMIA [None]
  - NEUTROPHIL COUNT DECREASED [None]
  - DUODENAL STENOSIS [None]
  - METASTASES TO PERITONEUM [None]
  - HYDRONEPHROSIS [None]
